FAERS Safety Report 6037212-X (Version None)
Quarter: 2009Q1

REPORT INFORMATION
  Report Type: 
  Country: None (occurrence: None)
  Receive Date: 20090114
  Receipt Date: 20090107
  Transmission Date: 20090719
  Serious: Yes (Hospitalization)
  Sender: FDA-Public Use
  Company Number: US-BIOGENIDEC-2008BI032804

PATIENT
  Age: 57 Year
  Sex: Female

DRUGS (2)
  1. AVONEX [Suspect]
     Indication: MULTIPLE SCLEROSIS
     Route: 030
     Dates: start: 19990201
  2. AVONEX [Suspect]
     Route: 030

REACTIONS (6)
  - AMNESIA [None]
  - DIARRHOEA [None]
  - FALL [None]
  - GAIT DISTURBANCE [None]
  - HYPOAESTHESIA [None]
  - PAIN IN EXTREMITY [None]
